FAERS Safety Report 5789423-6 (Version None)
Quarter: 2008Q2

REPORT INFORMATION
  Report Type: 
  Country: None (occurrence: None)
  Receive Date: 20080624
  Receipt Date: 20080611
  Transmission Date: 20081010
  Serious: No
  Sender: FDA-Public Use
  Company Number: 2008-178970-NL

PATIENT
  Age: 17 Year
  Sex: Female

DRUGS (1)
  1. ETONOGESTREL (BATCH #: 161371/211172) [Suspect]
     Dosage: DF
     Route: 059
     Dates: start: 20080117, end: 20080515

REACTIONS (4)
  - FACIAL PALSY [None]
  - HEADACHE [None]
  - MIGRAINE [None]
  - MYASTHENIA GRAVIS [None]
